FAERS Safety Report 7969360-9 (Version None)
Quarter: 2011Q4

REPORT INFORMATION
  Report Type: 
  Country: None (occurrence: None)
  Receive Date: 20111211
  Receipt Date: 20111102
  Transmission Date: 20120403
  Serious: Yes (Death)
  Sender: FDA-Public Use
  Company Number: PHHY2011US107317

PATIENT

DRUGS (3)
  1. PEGINTERFERON ALFA-2A [Concomitant]
     Dosage: UNK UKN, UNK
  2. RIBAVIRIN [Concomitant]
     Dosage: UNK UKN, UNK
  3. CYCLOSPORINE [Suspect]
     Indication: LIVER TRANSPLANT
     Dosage: UNK UKN, UNK

REACTIONS (1)
  - LIVER TRANSPLANT REJECTION [None]
